FAERS Safety Report 9641865 (Version 1)
Quarter: 2013Q4

REPORT INFORMATION
  Report Type: Spontaneous
  Country: DE (occurrence: DE)
  Receive Date: 20131023
  Receipt Date: 20131023
  Transmission Date: 20140711
  Serious: Yes (Death)
  Sender: FDA-Public Use
  Company Number: DE-CTI_01601_2013

PATIENT
  Age: 2 Day
  Sex: Female

DRUGS (4)
  1. PRIVIGEN [Suspect]
     Indication: INFECTION
     Dosage: DF
     Dates: start: 20130918, end: 2013
  2. CUROSURF [Suspect]
     Indication: PREMATURE BABY
     Dosage: DAILY
     Route: 039
     Dates: start: 20130916, end: 2013
  3. CUROSURF [Suspect]
     Indication: LOW BIRTH WEIGHT BABY
     Dosage: DAILY
     Route: 039
     Dates: start: 20130916, end: 2013
  4. MEDUNASAL HEPARIN [Concomitant]
     Dosage: 30IU/KG/DIE
     Dates: start: 20130916, end: 20130919

REACTIONS (2)
  - Neonatal asphyxia [Fatal]
  - Respiratory tract haemorrhage neonatal [Fatal]
